FAERS Safety Report 5655527-1 (Version None)
Quarter: 2008Q1

REPORT INFORMATION
  Report Type: 
  Country: None (occurrence: None)
  Receive Date: 20080307
  Receipt Date: 20080303
  Transmission Date: 20080703
  Serious: Yes (Other)
  Sender: FDA-Public Use
  Company Number: PT-SANOFI-SYNTHELABO-A01200802550

PATIENT
  Sex: Male

DRUGS (2)
  1. CAPECITABINE [Concomitant]
     Dosage: UNK
     Route: 065
  2. ELOXATIN [Suspect]
     Route: 042
     Dates: start: 20070101

REACTIONS (1)
  - LARYNGOSPASM [None]
